FAERS Safety Report 23105773 (Version 1)
Quarter: 2023Q4

REPORT INFORMATION
  Report Type: Spontaneous
  Country: None (occurrence: CA)
  Receive Date: 20231025
  Receipt Date: 20231025
  Transmission Date: 20240110
  Serious: Yes (Hospitalization)
  Sender: FDA-Public Use
  Company Number: CA-B.Braun Medical Inc.-2147459

PATIENT
  Sex: Female

DRUGS (16)
  1. DEXTROSE MONOHYDRATE\THEOPHYLLINE\THEOPHYLLINE ANHYDROUS [Suspect]
     Active Substance: DEXTROSE MONOHYDRATE\THEOPHYLLINE\THEOPHYLLINE ANHYDROUS
  2. BENRALIZUMAB [Suspect]
     Active Substance: BENRALIZUMAB
  3. BUDESONIDE [Suspect]
     Active Substance: BUDESONIDE
  4. BUDESONIDE\FORMOTEROL FUMARATE [Suspect]
     Active Substance: BUDESONIDE\FORMOTEROL FUMARATE
  5. DUPIXENT [Suspect]
     Active Substance: DUPILUMAB
  6. FLOVENT [Suspect]
     Active Substance: FLUTICASONE PROPIONATE
  7. ALBUTEROL SULFATE\IPRATROPIUM BROMIDE [Suspect]
     Active Substance: ALBUTEROL SULFATE\IPRATROPIUM BROMIDE
  8. MEPOLIZUMAB [Suspect]
     Active Substance: MEPOLIZUMAB
  9. NUCALA [Suspect]
     Active Substance: MEPOLIZUMAB
  10. PREDNISONE [Suspect]
     Active Substance: PREDNISONE
  11. ALBUTEROL [Suspect]
     Active Substance: ALBUTEROL
  12. SINGULAIR [Suspect]
     Active Substance: MONTELUKAST SODIUM
  13. SPIRIVA [Suspect]
     Active Substance: TIOTROPIUM BROMIDE MONOHYDRATE
  14. TERBUTALINE SULFATE [Suspect]
     Active Substance: TERBUTALINE SULFATE
  15. TEZEPELUMAB [Suspect]
     Active Substance: TEZEPELUMAB
  16. TIOTROPIUM BROMIDE MONOHYDRATE [Suspect]
     Active Substance: TIOTROPIUM BROMIDE MONOHYDRATE

REACTIONS (7)
  - Asthma [None]
  - Dyspnoea [None]
  - Full blood count abnormal [None]
  - Loss of personal independence in daily activities [None]
  - Sleep disorder due to a general medical condition [None]
  - Therapeutic product effect incomplete [None]
  - Wheezing [None]
